FAERS Safety Report 15779286 (Version 2)
Quarter: 2019Q1

REPORT INFORMATION
  Report Type: Spontaneous
  Country: US (occurrence: US)
  Receive Date: 20190101
  Receipt Date: 20190123
  Transmission Date: 20190417
  Serious: No
  Sender: FDA-Public Use
  Company Number: US-PFIZER INC-2017440134

PATIENT
  Age: 46 Year
  Sex: Male
  Weight: 83 kg

DRUGS (1)
  1. CELEBREX [Suspect]
     Active Substance: CELECOXIB
     Indication: ARTHRITIS
     Dosage: 200 MG, 1X/DAY [200MG, BY MOUTH, ONCE A DAY]
     Route: 048
     Dates: start: 2015

REACTIONS (1)
  - Weight decreased [Unknown]
